FAERS Safety Report 7528099-4 (Version None)
Quarter: 2011Q2

REPORT INFORMATION
  Report Type: 
  Country: None (occurrence: None)
  Receive Date: 20110607
  Receipt Date: 20110526
  Transmission Date: 20111010
  Serious: Yes (Hospitalization)
  Sender: FDA-Public Use
  Company Number: CA-ELI_LILLY_AND_COMPANY-CA201012005275

PATIENT
  Age: 64 Year
  Sex: Female

DRUGS (14)
  1. WARFARIN SODIUM [Concomitant]
  2. ASPIRIN [Concomitant]
  3. MULTI-VITAMIN [Concomitant]
  4. MORPHINE [Concomitant]
  5. MSIR [Concomitant]
  6. VITAMIN D [Concomitant]
  7. FORTEO [Suspect]
     Indication: OSTEOPOROSIS
     Dosage: 20 UG, DAILY (1/D)
     Route: 058
     Dates: start: 20091218
  8. TUMS EXTRA STRENGTH [Concomitant]
  9. CHOLESTYRAMINE [Concomitant]
  10. AMIODARONE HCL [Concomitant]
  11. SYNTHROID [Concomitant]
  12. VITAMIN B-12 [Concomitant]
  13. BISOPROLOL FUMARATE [Concomitant]
  14. GABAPENTIN [Concomitant]

REACTIONS (7)
  - ABDOMINAL OPERATION [None]
  - SOFT TISSUE INJURY [None]
  - FALL [None]
  - LIMB INJURY [None]
  - POST PROCEDURAL COMPLICATION [None]
  - POST GASTRIC SURGERY SYNDROME [None]
  - CONTUSION [None]
